FAERS Safety Report 17165571 (Version 5)
Quarter: 2020Q2

REPORT INFORMATION
  Report Type: Spontaneous
  Country: US (occurrence: US)
  Receive Date: 20191217
  Receipt Date: 20200604
  Transmission Date: 20200713
  Serious: No
  Sender: FDA-Public Use
  Company Number: US-VERTEX PHARMACEUTICALS-2019-012530

PATIENT
  Age: 39 Year
  Sex: Female
  Weight: 63 kg

DRUGS (2)
  1. TRIKAFTA [Suspect]
     Active Substance: ELEXACAFTOR\IVACAFTOR\TEZACAFTOR
     Indication: CYSTIC FIBROSIS
     Dosage: 100MG ELEXACAFTOR/50MG TEZACAFTOR/75MG IVACAFTOR AND 150MG IVACAFTOR, BID
     Route: 048
     Dates: start: 20191127
  2. CAYSTON [Concomitant]
     Active Substance: AZTREONAM
     Dosage: UNK

REACTIONS (10)
  - Breath sounds abnormal [Recovering/Resolving]
  - Vulvovaginal pruritus [Unknown]
  - Vulvovaginal dryness [Unknown]
  - Abdominal discomfort [Recovered/Resolved]
  - Fungal infection [Recovered/Resolved]
  - Increased bronchial secretion [Unknown]
  - Blood bilirubin increased [Unknown]
  - Gastrointestinal disorder [Recovered/Resolved]
  - Sinus disorder [Unknown]
  - Chills [Recovered/Resolved]

NARRATIVE: CASE EVENT DATE: 2019
